FAERS Safety Report 12745313 (Version 2)
Quarter: 2016Q4

REPORT INFORMATION
  Report Type: Spontaneous
  Country: US (occurrence: US)
  Receive Date: 20160915
  Receipt Date: 20161107
  Transmission Date: 20170207
  Serious: Yes (Hospitalization, Other)
  Sender: FDA-Public Use
  Company Number: US-DRREDDYS-USA/USA/16/0083136

PATIENT
  Age: 59 Year
  Sex: Female
  Weight: 70.3 kg

DRUGS (5)
  1. LAMOTRIGINE EXTENDED RELEASE TABLETS [Suspect]
     Active Substance: LAMOTRIGINE
     Indication: BIPOLAR DISORDER
     Dosage: AT BED TIME
     Route: 048
     Dates: start: 201602, end: 20160812
  2. INDOMETHACIN. [Concomitant]
     Active Substance: INDOMETHACIN
     Indication: PRODUCT USED FOR UNKNOWN INDICATION
     Route: 065
     Dates: start: 2014
  3. LAMOTRIGINE TABLETS [Suspect]
     Active Substance: LAMOTRIGINE
     Indication: BIPOLAR DISORDER
     Dosage: AT BED TIME
     Dates: start: 201509
  4. ZIPRASIDONE. [Suspect]
     Active Substance: ZIPRASIDONE
     Indication: BIPOLAR DISORDER
     Dosage: AT BEDTIME
     Route: 065
     Dates: start: 201503, end: 201509
  5. SYNTHROID [Concomitant]
     Active Substance: LEVOTHYROXINE SODIUM
     Indication: PRODUCT USED FOR UNKNOWN INDICATION
     Route: 065
     Dates: start: 2013

REACTIONS (22)
  - Hyperhidrosis [Not Recovered/Not Resolved]
  - Chills [Not Recovered/Not Resolved]
  - Fall [Recovered/Resolved]
  - Feeling hot [Recovered/Resolved]
  - Concussion [Recovering/Resolving]
  - Altered state of consciousness [Unknown]
  - Tremor [Not Recovered/Not Resolved]
  - Nausea [Recovered/Resolved]
  - Dehydration [Recovered/Resolved]
  - Head injury [Recovered/Resolved]
  - Blindness [Recovered/Resolved]
  - Vision blurred [Not Recovered/Not Resolved]
  - Dizziness [Recovering/Resolving]
  - Gait disturbance [Unknown]
  - Asthenia [Not Recovered/Not Resolved]
  - Aphonia [Recovered/Resolved]
  - Vomiting [Recovered/Resolved]
  - Hot flush [Recovering/Resolving]
  - Oropharyngeal pain [Recovered/Resolved]
  - Oral mucosal blistering [Recovered/Resolved]
  - Motor dysfunction [Recovered/Resolved]
  - Haemorrhage [Unknown]

NARRATIVE: CASE EVENT DATE: 20160813
